FAERS Safety Report 11288897 (Version 3)
Quarter: 2015Q3

REPORT INFORMATION
  Report Type: Report from Study
  Country: DE (occurrence: DE)
  Receive Date: 20150721
  Receipt Date: 20150819
  Transmission Date: 20151125
  Serious: Yes (Hospitalization)
  Sender: FDA-Public Use
  Company Number: DE-GILEAD-2015-0162828

PATIENT
  Age: 30 Year
  Sex: Male
  Weight: 71 kg

DRUGS (4)
  1. LEDIPASVIR/SOFOSBUVIR [Suspect]
     Active Substance: LEDIPASVIR\SOFOSBUVIR
     Indication: CHRONIC HEPATITIS C
     Dosage: 1 DF, QD
     Route: 048
     Dates: start: 20150302, end: 20150525
  2. TRUVADA [Suspect]
     Active Substance: EMTRICITABINE\TENOFOVIR DISOPROXIL FUMARATE
     Indication: HIV INFECTION
     Dosage: 200 MG, QD
     Route: 048
     Dates: start: 20110715
  3. METHYLENEDIOXYMETHAMPHETAMINE [Suspect]
     Active Substance: METHYLENEDIOXYMETHAMPHETAMINE
     Indication: SUBSTANCE ABUSE
     Dosage: 180 MG, TID
     Route: 065
     Dates: start: 20150704, end: 20150705
  4. VIRAMUNE [Suspect]
     Active Substance: NEVIRAPINE
     Indication: HIV INFECTION
     Dosage: 400 MG, QD
     Route: 048
     Dates: start: 20110715

REACTIONS (5)
  - Myositis [Recovering/Resolving]
  - Alanine aminotransferase abnormal [Unknown]
  - Gamma-glutamyltransferase increased [Recovering/Resolving]
  - Blood creatine phosphokinase abnormal [Unknown]
  - Aspartate aminotransferase abnormal [Unknown]

NARRATIVE: CASE EVENT DATE: 20140702
